FAERS Safety Report 15589330 (Version 2)
Quarter: 2018Q4

REPORT INFORMATION
  Report Type: Spontaneous
  Country: US (occurrence: US)
  Receive Date: 20181106
  Receipt Date: 20181114
  Transmission Date: 20190205
  Serious: Yes (Hospitalization)
  Sender: FDA-Public Use
  Company Number: US-TEVA-2018-US-972699

PATIENT
  Age: 40 Year
  Sex: Female

DRUGS (2)
  1. PREDNISONE. [Suspect]
     Active Substance: PREDNISONE
     Indication: LUPUS NEPHRITIS
     Dosage: 20 MILLIGRAM DAILY;
     Route: 065
  2. MYCOPHENOLATE-MOFETIL [Suspect]
     Active Substance: MYCOPHENOLATE MOFETIL
     Indication: LUPUS NEPHRITIS
     Dosage: 1500 MILLIGRAM DAILY;
     Route: 065

REACTIONS (4)
  - Meningitis tuberculous [Recovering/Resolving]
  - Staphylococcal infection [Unknown]
  - Disseminated tuberculosis [Recovering/Resolving]
  - Sinusitis bacterial [Recovered/Resolved]
